FAERS Safety Report 12647676 (Version 1)
Quarter: 2016Q3

REPORT INFORMATION
  Report Type: Spontaneous
  Country: US (occurrence: None)
  Receive Date: 20160811
  Receipt Date: 20160811
  Transmission Date: 20161109
  Serious: No
  Sender: FDA-Public Use
  Company Number: None

PATIENT
  Age: 46 Year
  Sex: Female

DRUGS (37)
  1. KEFLEX [Concomitant]
     Active Substance: CEPHALEXIN
  2. FUROSEMIDE. [Concomitant]
     Active Substance: FUROSEMIDE
  3. CALMOSEPTINE [Concomitant]
     Active Substance: MENTHOL\ZINC OXIDE
  4. IMATINIB [Suspect]
     Active Substance: IMATINIB
     Indication: LEUKAEMIA
     Route: 048
  5. LIDODERM [Concomitant]
     Active Substance: LIDOCAINE
  6. IPRATROPIUM [Concomitant]
     Active Substance: IPRATROPIUM
  7. FOLBEE [Concomitant]
     Active Substance: CYANOCOBALAMIN\FOLIC ACID\PYRIDOXINE HYDROCHLORIDE
  8. TRAMADOL. [Concomitant]
     Active Substance: TRAMADOL
  9. ADVAIR HFA [Concomitant]
     Active Substance: FLUTICASONE PROPIONATE\SALMETEROL XINAFOATE
  10. VITAMIN D [Concomitant]
     Active Substance: CHOLECALCIFEROL
  11. DOXYCYCLINE. [Concomitant]
     Active Substance: DOXYCYCLINE
  12. NYSTOP [Concomitant]
     Active Substance: NYSTATIN
  13. COUMADIN [Concomitant]
     Active Substance: WARFARIN SODIUM
  14. ALLOPURINOL. [Concomitant]
     Active Substance: ALLOPURINOL
  15. CELLCEPT [Concomitant]
     Active Substance: MYCOPHENOLATE MOFETIL\MYCOPHENOLATE MOFETIL HYDROCHLORIDE
  16. TRAZODONE [Concomitant]
     Active Substance: TRAZODONE HYDROCHLORIDE
  17. MOXIFLOXACIN. [Concomitant]
     Active Substance: MOXIFLOXACIN
  18. MYCOPHENOLATE [Concomitant]
     Active Substance: MYCOPHENOLIC ACID
  19. POTASSIUM CHLORIDE. [Concomitant]
     Active Substance: POTASSIUM CHLORIDE
  20. PHENTERMINE. [Concomitant]
     Active Substance: PHENTERMINE
  21. ALBUTEROL. [Concomitant]
     Active Substance: ALBUTEROL
  22. SPIRONOLACTONE. [Concomitant]
     Active Substance: SPIRONOLACTONE
  23. PANTOPRAZOLE [Concomitant]
     Active Substance: PANTOPRAZOLE SODIUM
  24. PREDNISONE. [Concomitant]
     Active Substance: PREDNISONE
  25. NISOLDIPINE. [Concomitant]
     Active Substance: NISOLDIPINE
  26. LORAZEPAM. [Concomitant]
     Active Substance: LORAZEPAM
  27. SYMBICORT [Concomitant]
     Active Substance: BUDESONIDE\FORMOTEROL FUMARATE DIHYDRATE
  28. ADEMPAS [Concomitant]
     Active Substance: RIOCIGUAT
  29. IRON [Concomitant]
     Active Substance: IRON
  30. FLUTICASONE [Concomitant]
     Active Substance: FLUTICASONE\FLUTICASONE PROPIONATE
  31. TRACLEER [Concomitant]
     Active Substance: BOSENTAN
  32. TYLENOL [Concomitant]
     Active Substance: ACETAMINOPHEN
  33. BACTRIM DS [Concomitant]
     Active Substance: SULFAMETHOXAZOLE\TRIMETHOPRIM
  34. CYCLOBENZAPRINE [Concomitant]
     Active Substance: CYCLOBENZAPRINE
  35. AZITHROMYCIN ANHYDROUS. [Concomitant]
     Active Substance: AZITHROMYCIN ANHYDROUS
  36. NIFEDIPINE. [Concomitant]
     Active Substance: NIFEDIPINE
  37. SMZ/TMP [Concomitant]
     Active Substance: SULFAMETHOXAZOLE\TRIMETHOPRIM

REACTIONS (1)
  - Hospitalisation [None]

NARRATIVE: CASE EVENT DATE: 2016
